FAERS Safety Report 17010440 (Version 1)
Quarter: 2019Q4

REPORT INFORMATION
  Report Type: Spontaneous
  Country: US (occurrence: US)
  Receive Date: 20191107
  Receipt Date: 20191107
  Transmission Date: 20200122
  Serious: Yes (Hospitalization, Other)
  Sender: FDA-Public Use
  Company Number: None

PATIENT
  Age: 31 Year
  Sex: Female

DRUGS (1)
  1. DAUNORUBICIN-CYTARBINE LIPOSOMAL [Suspect]
     Active Substance: CYTARABINE\DAUNORUBICIN
     Dosage: ?          OTHER FREQUENCY:3 TOTAL DOSES;?
     Route: 042
     Dates: start: 20190225, end: 20190301

REACTIONS (1)
  - Acute kidney injury [None]
